FAERS Safety Report 7758262-9 (Version None)
Quarter: 2011Q3

REPORT INFORMATION
  Report Type: 
  Country: None (occurrence: None)
  Receive Date: 20110825
  Receipt Date: 20110613
  Transmission Date: 20111222
  Serious: No
  Sender: FDA-Public Use
  Company Number: 330096

PATIENT
  Age: 59 Year
  Sex: Female

DRUGS (1)
  1. VICTOZA [Suspect]
     Indication: INSULIN RESISTANCE
     Dosage: SUBCUTANEOUS
     Route: 058
     Dates: start: 20110602

REACTIONS (1)
  - URINARY TRACT INFECTION [None]
